FAERS Safety Report 7713811-1 (Version None)
Quarter: 2011Q3

REPORT INFORMATION
  Report Type: 
  Country: None (occurrence: None)
  Receive Date: 20110826
  Receipt Date: 20110822
  Transmission Date: 20111222
  Serious: No
  Sender: FDA-Public Use
  Company Number: US-PFIZER INC-2011194693

PATIENT
  Sex: Male
  Weight: 67.12 kg

DRUGS (6)
  1. NEXIUM [Concomitant]
     Dosage: 20 MG, UNK
  2. SUTENT [Suspect]
     Dosage: 25 MG, 1X/DAY (FOR 4 WEEKS THEN OFF 2 WEEKS)
     Route: 048
  3. ALBUTEROL SULFATE AUTOHALER [Concomitant]
     Dosage: 90 UG, UNK
  4. ADVAIR DISKUS 100/50 [Concomitant]
     Dosage: 100/50
  5. SPIRIVA [Concomitant]
     Dosage: UNK
  6. SUTENT [Suspect]
     Dosage: 25 MG, 1X/DAY (FOR 2 WEEKS THEN OFF 1 WEEK)
     Route: 048
     Dates: start: 20110101

REACTIONS (1)
  - MOUTH ULCERATION [None]
